FAERS Safety Report 7957254-4 (Version None)
Quarter: 2011Q4

REPORT INFORMATION
  Report Type: 
  Country: None (occurrence: None)
  Receive Date: 20111201
  Receipt Date: 20111116
  Transmission Date: 20120403
  Serious: Yes (Other)
  Sender: FDA-Public Use
  Company Number: 0222281

PATIENT
  Age: 38 Year
  Sex: Female

DRUGS (1)
  1. TACHOSIL [Suspect]
     Indication: UTERINE INJURY
     Dosage: 2 MEDIUM PATCHES

REACTIONS (1)
  - MEDICATION RESIDUE [None]
